FAERS Safety Report 10361844 (Version 1)
Quarter: 2014Q3

REPORT INFORMATION
  Report Type: Spontaneous
  Country: JP (occurrence: JP)
  Receive Date: 20140805
  Receipt Date: 20140805
  Transmission Date: 20150326
  Serious: Yes (Death)
  Sender: FDA-Public Use
  Company Number: PHHY2012JP133545

PATIENT
  Age: 68 Year
  Sex: Male

DRUGS (2)
  1. EXJADE [Suspect]
     Active Substance: DEFERASIROX
     Indication: APLASTIC ANAEMIA
     Dosage: 500 MG, QOD
  2. CYCLOSPORIN A [Concomitant]
     Active Substance: CYCLOSPORINE

REACTIONS (3)
  - Blood creatinine increased [Unknown]
  - Condition aggravated [Fatal]
  - Aplastic anaemia [Fatal]
